FAERS Safety Report 16593131 (Version 2)
Quarter: 2019Q4

REPORT INFORMATION
  Report Type: Spontaneous
  Country: US (occurrence: US)
  Receive Date: 20190718
  Receipt Date: 20191030
  Transmission Date: 20200122
  Serious: No
  Sender: FDA-Public Use
  Company Number: US-009507513-1906USA009066

PATIENT
  Age: 56 Year
  Sex: Male

DRUGS (2)
  1. DASABUVIR SODIUM (+) OMBITASVIR (+) PARITAPREVIR (+) RITONAVIR [Suspect]
     Active Substance: DASABUVIR\OMBITASVIR\PARITAPREVIR\RITONAVIR
     Indication: HEPATITIS C
  2. RIBAVIRIN. [Suspect]
     Active Substance: RIBAVIRIN
     Indication: HEPATITIS C

REACTIONS (3)
  - Gastrointestinal disorder [Unknown]
  - Treatment failure [Unknown]
  - Drug intolerance [Unknown]
